FAERS Safety Report 18129858 (Version 1)
Quarter: 2020Q3

REPORT INFORMATION
  Report Type: Spontaneous
  Country: US (occurrence: US)
  Receive Date: 20200810
  Receipt Date: 20200810
  Transmission Date: 20201103
  Serious: No
  Sender: FDA-Public Use
  Company Number: US-PERRIGO-20US004182

PATIENT
  Age: 80 Year
  Sex: Male
  Weight: 78.01 kg

DRUGS (3)
  1. LORATADINE. [Suspect]
     Active Substance: LORATADINE
     Indication: RHINORRHOEA
     Dosage: 10 MG, UNKNOWN
     Route: 048
     Dates: start: 201909, end: 201909
  2. LORATADINE. [Suspect]
     Active Substance: LORATADINE
     Dosage: 1/2 TABLET, UNKNOWN
     Route: 048
     Dates: start: 202003, end: 202003
  3. LORATADINE. [Suspect]
     Active Substance: LORATADINE
     Dosage: 10 MG, UNKNOWN
     Route: 048
     Dates: start: 202003, end: 202003

REACTIONS (4)
  - Asthenia [Recovered/Resolved]
  - Wrong technique in product usage process [Recovered/Resolved]
  - Fatigue [Recovered/Resolved]
  - Incorrect dose administered [Recovered/Resolved]

NARRATIVE: CASE EVENT DATE: 201909
